FAERS Safety Report 4487014-0 (Version None)
Quarter: 2004Q4

REPORT INFORMATION
  Report Type: 
  Country: None (occurrence: None)
  Receive Date: 20041022
  Receipt Date: 20041011
  Transmission Date: 20050328
  Serious: Yes (Other)
  Sender: FDA-Public Use
  Company Number: 2004238633GB

PATIENT
  Age: 65 Year
  Sex: Female
  Weight: 55 kg

DRUGS (5)
  1. CELEBREX [Suspect]
     Indication: ARTHRALGIA
     Dosage: 100 MG, QD, ORAL
     Route: 048
     Dates: start: 20040819, end: 20040830
  2. CO-CODAMOL [Concomitant]
  3. VENTOLIN [Concomitant]
  4. FLIXOTIDE (FLUTICASONE PROPIONATE) [Concomitant]
  5. SINEMET [Concomitant]

REACTIONS (4)
  - AMNESIA [None]
  - APHASIA [None]
  - MEMORY IMPAIRMENT [None]
  - THOUGHT BLOCKING [None]
